FAERS Safety Report 5831859-9 (Version None)
Quarter: 2008Q3

REPORT INFORMATION
  Report Type: 
  Country: None (occurrence: None)
  Receive Date: 20080804
  Receipt Date: 20080731
  Transmission Date: 20090109
  Serious: Yes (Hospitalization)
  Sender: FDA-Public Use
  Company Number: FR-BRISTOL-MYERS SQUIBB COMPANY-14285555

PATIENT
  Age: 88 Year
  Sex: Female

DRUGS (5)
  1. APROVEL TABS 150 MG [Suspect]
     Dosage: OS
     Route: 048
     Dates: end: 20071112
  2. CYCLADOL [Suspect]
     Indication: ARTHRALGIA
     Dosage: TAKEN OS,(INTRODUCED 8 DAYS BEFORE HER HOSPITALIZATION)
     Route: 048
     Dates: start: 20071102, end: 20071109
  3. LASIX [Suspect]
     Route: 048
     Dates: end: 20071112
  4. CORDARONE [Concomitant]
     Dates: end: 20071116
  5. PLAVIX [Concomitant]

REACTIONS (6)
  - CARDIAC FAILURE [None]
  - CLUMSINESS [None]
  - FALL [None]
  - HYPERTENSION [None]
  - RENAL FAILURE [None]
  - RHABDOMYOLYSIS [None]
